FAERS Safety Report 13176972 (Version 1)
Quarter: 2017Q1

REPORT INFORMATION
  Report Type: Report from Study
  Country: US (occurrence: US)
  Receive Date: 20170201
  Receipt Date: 20170201
  Transmission Date: 20170428
  Serious: Yes (Hospitalization)
  Sender: FDA-Public Use
  Company Number: US-IPSEN-CABO-16006771

PATIENT
  Age: 70 Year
  Sex: Male

DRUGS (4)
  1. CABOMETYX [Suspect]
     Active Substance: CABOZANTINIB S-MALATE
     Indication: RENAL CANCER
     Dosage: 60 MG, QD
     Route: 048
     Dates: start: 20160625, end: 201607
  2. CABOMETYX [Suspect]
     Active Substance: CABOZANTINIB S-MALATE
     Dosage: 40 MG, QD
     Route: 048
     Dates: start: 201607
  3. CABOMETYX [Suspect]
     Active Substance: CABOZANTINIB S-MALATE
     Indication: METASTASIS
     Dosage: 60 MG, QD
     Route: 048
     Dates: start: 201607, end: 201607
  4. CIPROFLOXACIN. [Concomitant]
     Active Substance: CIPROFLOXACIN

REACTIONS (4)
  - Liver function test increased [Unknown]
  - Fatigue [Unknown]
  - Vomiting [Recovering/Resolving]
  - Constipation [Unknown]

NARRATIVE: CASE EVENT DATE: 20160625
